FAERS Safety Report 7722793-8 (Version None)
Quarter: 2011Q3

REPORT INFORMATION
  Report Type: 
  Country: None (occurrence: None)
  Receive Date: 20110901
  Receipt Date: 20110824
  Transmission Date: 20111222
  Serious: Yes (Hospitalization, Other)
  Sender: FDA-Public Use
  Company Number: US-BIOGENIDEC-2010BI031347

PATIENT
  Sex: Female
  Weight: 74 kg

DRUGS (2)
  1. AVONEX [Suspect]
     Route: 030
     Dates: start: 20040213
  2. AVONEX [Suspect]
     Indication: MULTIPLE SCLEROSIS
     Route: 030

REACTIONS (9)
  - WOUND TREATMENT [None]
  - MULTIPLE SCLEROSIS RELAPSE [None]
  - PERONEAL NERVE PALSY [None]
  - PROCEDURAL PAIN [None]
  - PRURITUS [None]
  - POSTOPERATIVE WOUND INFECTION [None]
  - PARTIAL SEIZURES [None]
  - ERYTHEMA [None]
  - MENINGIOMA BENIGN [None]
